FAERS Safety Report 10607774 (Version 6)
Quarter: 2019Q2

REPORT INFORMATION
  Report Type: Spontaneous
  Country: FR (occurrence: FR)
  Receive Date: 20141125
  Receipt Date: 20190520
  Transmission Date: 20190711
  Serious: Yes (Other)
  Sender: FDA-Public Use
  Company Number: FR-JNJFOC-20140714217

PATIENT
  Age: 40 Year
  Sex: Male
  Weight: 45 kg

DRUGS (24)
  1. PREZISTA [Suspect]
     Active Substance: DARUNAVIR ETHANOLATE
     Indication: PRODUCT USED FOR UNKNOWN INDICATION
     Route: 048
  2. RITONAVIR. [Suspect]
     Active Substance: RITONAVIR
     Indication: DYSPEPSIA
     Route: 065
     Dates: start: 20141020
  3. TIVICAY [Suspect]
     Active Substance: DOLUTEGRAVIR SODIUM
     Indication: PRODUCT USED FOR UNKNOWN INDICATION
     Route: 065
     Dates: start: 20141020
  4. MAGNESIUM SULFATE. [Concomitant]
     Active Substance: MAGNESIUM SULFATE
     Route: 065
  5. RITONAVIR. [Suspect]
     Active Substance: RITONAVIR
     Indication: DYSPEPSIA
     Route: 065
     Dates: start: 20141008
  6. AZIDOTHYMIDINE [Suspect]
     Active Substance: ZIDOVUDINE
     Indication: PRODUCT USED FOR UNKNOWN INDICATION
     Route: 042
     Dates: start: 20141007
  7. FUZEON [Suspect]
     Active Substance: ENFUVIRTIDE
     Indication: PRODUCT USED FOR UNKNOWN INDICATION
     Route: 042
     Dates: start: 20141007
  8. CITALOPRAM [Concomitant]
     Active Substance: CITALOPRAM HYDROBROMIDE
     Dosage: MORNING
     Route: 065
  9. TRILEPTAL [Concomitant]
     Active Substance: OXCARBAZEPINE
     Dosage: 150: MORNING AND EVENING
     Route: 065
  10. PHOCYTAN [Concomitant]
     Active Substance: .ALPHA.-GLUCOSE-1-PHOSPHATE
     Route: 065
  11. PANTOPRAZOLE [Concomitant]
     Active Substance: PANTOPRAZOLE
     Dosage: 20: 1 IN THE EVENING
     Route: 065
  12. CERNEVIT [Concomitant]
     Active Substance: VITAMINS
     Dosage: INFUSION USING THE IMPLANTABLE VENOUS ACCESS SYSTEM ON MONDAYS, WEDNESDAYS, THURSDAYS AND SATURDAYS
     Route: 065
  13. PARACETAMOL [Concomitant]
     Active Substance: ACETAMINOPHEN
     Dosage: 500 MG X 4
     Route: 065
  14. PREZISTA [Suspect]
     Active Substance: DARUNAVIR ETHANOLATE
     Indication: PRODUCT USED FOR UNKNOWN INDICATION
     Route: 048
     Dates: start: 20141008
  15. LEVOTHYROX [Concomitant]
     Active Substance: LEVOTHYROXINE
     Dosage: MORNING
     Route: 065
  16. DECAN (FRANCE) [Concomitant]
     Active Substance: MINERALS
     Route: 065
  17. INTELENCE [Suspect]
     Active Substance: ETRAVIRINE
     Indication: PRODUCT USED FOR UNKNOWN INDICATION
     Route: 048
  18. UVEDOSE [Concomitant]
     Active Substance: CHOLECALCIFEROL
     Dosage: 1 AMPOULE EVERY 14 DAYS
     Route: 065
  19. ZOPHREN [Concomitant]
     Active Substance: ONDANSETRON
     Dosage: MORNING AND EVENING
     Route: 065
  20. FENTANYL. [Concomitant]
     Active Substance: FENTANYL
     Route: 065
  21. OLIMEL [Concomitant]
     Active Substance: AMINO ACIDS\DEXTROSE\SOYBEAN OIL
     Route: 065
  22. PREZISTA [Suspect]
     Active Substance: DARUNAVIR ETHANOLATE
     Indication: PRODUCT USED FOR UNKNOWN INDICATION
     Route: 048
     Dates: start: 20141020
  23. RILPIVIRINE LA [Concomitant]
     Active Substance: RILPIVIRINE
     Indication: HIV INFECTION
     Route: 030
     Dates: start: 20141008
  24. WELLVONE [Concomitant]
     Active Substance: ATOVAQUONE
     Dosage: MORNING AND EVENING
     Route: 065

REACTIONS (8)
  - Device related infection [Unknown]
  - Vomiting [Recovering/Resolving]
  - Overdose [Unknown]
  - Blood disorder [Unknown]
  - Drug ineffective [Unknown]
  - Infection [Recovered/Resolved]
  - Product prescribing error [Unknown]
  - Treatment noncompliance [Unknown]

NARRATIVE: CASE EVENT DATE: 20141008
